FAERS Safety Report 7321256-1 (Version None)
Quarter: 2011Q1

REPORT INFORMATION
  Report Type: 
  Country: None (occurrence: None)
  Receive Date: 20110228
  Receipt Date: 20110222
  Transmission Date: 20110831
  Serious: Yes (Other)
  Sender: FDA-Public Use
  Company Number: GB-ABBOTT-11P-167-0707072-00

PATIENT
  Age: 45 Year
  Sex: Male

DRUGS (6)
  1. ALENDRONATE [Concomitant]
     Indication: SARCOIDOSIS
     Route: 048
  2. LANSOPRAZOLE [Suspect]
     Indication: SARCOIDOSIS
     Route: 048
  3. HUMIRA [Suspect]
     Indication: SARCOIDOSIS
     Route: 058
     Dates: start: 20110124, end: 20110127
  4. PREDNISOLONE [Concomitant]
     Indication: SARCOIDOSIS
     Route: 048
  5. METHOTREXATE [Concomitant]
     Indication: SARCOIDOSIS
     Route: 048
  6. FOLIC ACID [Concomitant]
     Indication: SARCOIDOSIS

REACTIONS (6)
  - MYALGIA [None]
  - MALAISE [None]
  - PARAESTHESIA [None]
  - ARTHRALGIA [None]
  - DIZZINESS [None]
  - HEADACHE [None]
